FAERS Safety Report 5729436-3 (Version None)
Quarter: 2008Q2

REPORT INFORMATION
  Report Type: 
  Country: None (occurrence: None)
  Receive Date: 20080501
  Receipt Date: 20080414
  Transmission Date: 20081010
  Serious: Yes (Death)
  Sender: FDA-Public Use
  Company Number: 1-16017802

PATIENT
  Age: 62 Year
  Sex: Female

DRUGS (2)
  1. FENTANYL [Suspect]
     Indication: CHEST PAIN
     Dosage: TRANSDERMAL
     Route: 062
     Dates: start: 20080229, end: 20080303
  2. FENTANYL [Suspect]

REACTIONS (4)
  - BRADYPNOEA [None]
  - SNORING [None]
  - SOMNOLENCE [None]
  - SUDDEN DEATH [None]
